FAERS Safety Report 14871872 (Version 1)
Quarter: 2018Q2

REPORT INFORMATION
  Report Type: Spontaneous
  Country: FR (occurrence: FR)
  Receive Date: 20180509
  Receipt Date: 20180509
  Transmission Date: 20180711
  Serious: Yes (Other)
  Sender: FDA-Public Use
  Company Number: FR-ROCHE-2117893

PATIENT
  Age: 75 Year
  Sex: Male

DRUGS (1)
  1. ESBRIET [Suspect]
     Active Substance: PIRFENIDONE
     Indication: IDIOPATHIC PULMONARY FIBROSIS
     Route: 048
     Dates: start: 201710, end: 20180410

REACTIONS (4)
  - Nausea [Recovering/Resolving]
  - Initial insomnia [Recovering/Resolving]
  - Chest pain [Recovering/Resolving]
  - Abdominal pain upper [Recovering/Resolving]
